FAERS Safety Report 13313493 (Version 2)
Quarter: 2017Q1

REPORT INFORMATION
  Report Type: Report from Study
  Country: US (occurrence: US)
  Receive Date: 20170309
  Receipt Date: 20170315
  Transmission Date: 20170428
  Serious: Yes (Other)
  Sender: FDA-Public Use
  Company Number: US-GILEAD-2017-0257045

PATIENT
  Age: 24 Week
  Sex: Male

DRUGS (3)
  1. TENOFOVIR DISOPROXIL FUMARATE. [Suspect]
     Active Substance: TENOFOVIR DISOPROXIL FUMARATE
     Indication: HEPATITIS B
     Dosage: 300 MG, QD
     Route: 064
     Dates: start: 20160911
  2. ENTECAVIR. [Suspect]
     Active Substance: ENTECAVIR
     Indication: HEPATITIS B
     Dosage: 0.5 MG, QD
     Route: 064
     Dates: start: 20160616, end: 20160911
  3. FOLATE [Suspect]
     Active Substance: FOLATE SODIUM
     Indication: SUPPLEMENTATION THERAPY
     Route: 064

REACTIONS (3)
  - Hydrocephalus [Not Recovered/Not Resolved]
  - Congenital cerebellar agenesis [Unknown]
  - Foetal exposure during pregnancy [Recovered/Resolved]

NARRATIVE: CASE EVENT DATE: 20161123
